FAERS Safety Report 8473720-X (Version None)
Quarter: 2012Q2

REPORT INFORMATION
  Report Type: 
  Country: None (occurrence: None)
  Receive Date: 20120628
  Receipt Date: 20111021
  Transmission Date: 20120825
  Serious: Yes (Other)
  Sender: FDA-Public Use
  Company Number: US-MYLANLABS-2011S1020082

PATIENT
  Age: 52 Year
  Sex: Female

DRUGS (5)
  1. NAMENDA [Concomitant]
  2. RISPERIDONE [Concomitant]
  3. CLOZAPINE [Suspect]
     Indication: SCHIZOPHRENIA
     Route: 048
     Dates: start: 20050101, end: 20110921
  4. CLOZAPINE [Suspect]
     Indication: PSYCHOTIC DISORDER
     Route: 048
     Dates: start: 20050101, end: 20110921
  5. DEPAKOTE [Concomitant]

REACTIONS (1)
  - GRANULOCYTOPENIA [None]
